FAERS Safety Report 9510632 (Version 1)
Quarter: 2013Q3

REPORT INFORMATION
  Report Type: Report from Study
  Country: NL (occurrence: NL)
  Receive Date: 20130909
  Receipt Date: 20130909
  Transmission Date: 20140515
  Serious: Yes (Hospitalization)
  Sender: FDA-Public Use
  Company Number: NL-ABBOTT-13P-114-1142501-00

PATIENT
  Age: 83 Year
  Sex: Male
  Weight: 86 kg

DRUGS (7)
  1. LUCRIN [Suspect]
     Indication: PROSTATE CANCER
     Route: 058
     Dates: start: 20130314
  2. LISINOPRIL [Concomitant]
     Indication: HYPERTENSION
     Route: 048
     Dates: start: 201308
  3. GLIMEPIRIDE [Concomitant]
     Indication: DIABETES MELLITUS
     Route: 048
  4. VATOUD [Concomitant]
     Indication: THROMBOSIS
     Route: 048
     Dates: start: 201212
  5. VELODIPINE [Concomitant]
     Indication: HYPERTENSION
     Route: 048
  6. BUMETANIDE [Concomitant]
     Indication: DIURETIC THERAPY
  7. METOPROLOL SUCCINATE [Concomitant]
     Indication: HYPERTENSION
     Dosage: SR
     Route: 048

REACTIONS (3)
  - Pulmonary oedema [Recovering/Resolving]
  - Fatigue [Recovering/Resolving]
  - Hot flush [Not Recovered/Not Resolved]
